FAERS Safety Report 6742039-7 (Version None)
Quarter: 2010Q2

REPORT INFORMATION
  Report Type: 
  Country: None (occurrence: None)
  Receive Date: 20100526
  Receipt Date: 20100517
  Transmission Date: 20101027
  Serious: Yes (Death, Hospitalization)
  Sender: FDA-Public Use
  Company Number: AU-ALEXION-A201000490

PATIENT
  Sex: Female

DRUGS (2)
  1. SOLIRIS [Suspect]
     Indication: PAROXYSMAL NOCTURNAL HAEMOGLOBINURIA
     Dosage: 900 MG, Q2W
     Route: 042
     Dates: start: 20080804, end: 20100414
  2. SOLIRIS [Suspect]
     Dosage: 600 MG, UNK
     Route: 042

REACTIONS (4)
  - MENINGITIS [None]
  - PNEUMONIA [None]
  - SEPSIS [None]
  - SUDDEN DEATH [None]
